FAERS Safety Report 6399620-7 (Version None)
Quarter: 2009Q4

REPORT INFORMATION
  Report Type: 
  Country: None (occurrence: None)
  Receive Date: 20091014
  Receipt Date: 20091005
  Transmission Date: 20100525
  Serious: Yes (Death, Hospitalization, Other)
  Sender: FDA-Public Use
  Company Number: US-TYCO HEALTHCARE/MALLINCKRODT-T200901764

PATIENT
  Sex: Male

DRUGS (23)
  1. METHADONE HCL [Suspect]
     Indication: DRUG REHABILITATION
     Dosage: 40 MG, QD
  2. MORPHINE [Suspect]
     Indication: PALLIATIVE CARE
     Dosage: UNK
     Route: 042
     Dates: start: 19960509
  3. CEFTRIAXONE [Suspect]
     Indication: OPPORTUNISTIC INFECTION PROPHYLAXIS
     Dosage: UNK
     Dates: start: 19960508
  4. INVIRASE [Suspect]
     Indication: HIV INFECTION
     Dosage: 600 MG, TID
     Route: 048
     Dates: start: 19960501
  5. VERSED [Suspect]
     Indication: AGITATION
     Dosage: UNK
     Dates: start: 19960508
  6. TRIMETHOPRIM [Suspect]
     Indication: ANTIFUNGAL PROPHYLAXIS
     Dosage: 150 MG, Q 24HRS
  7. AMPICILLIN [Suspect]
     Indication: OPPORTUNISTIC INFECTION PROPHYLAXIS
     Dosage: UNK
     Dates: start: 19960508
  8. AZT [Suspect]
     Indication: ANTIRETROVIRAL THERAPY
     Dosage: 200 MG, TID
  9. LAMIVUDINE [Suspect]
     Indication: ANTIRETROVIRAL THERAPY
     Dosage: 150 MG, BID
  10. SULFADIAZINE [Suspect]
     Indication: DRUG USE FOR UNKNOWN INDICATION
     Dosage: 25 MG, TID
  11. DILANTIN [Suspect]
     Indication: DRUG USE FOR UNKNOWN INDICATION
     Dosage: 200 MG, BID
  12. HYDROXYZINE [Suspect]
     Indication: DRUG USE FOR UNKNOWN INDICATION
     Dosage: UNK, AS NEEDED
  13. ETHAMBUTOL                         /00022302/ [Suspect]
     Indication: OPPORTUNISTIC INFECTION PROPHYLAXIS
     Dosage: 150 MG, TWICE DAILY
  14. FOLIC ACID [Suspect]
     Indication: DRUG USE FOR UNKNOWN INDICATION
     Dosage: 5 MG, QD
  15. PYRIMETHAMINE [Suspect]
     Indication: DRUG USE FOR UNKNOWN INDICATION
     Dosage: 25 MG, TID
  16. ATIVAN [Suspect]
     Indication: AGITATION
     Dosage: UNK
     Dates: start: 19960508
  17. HALDOL [Suspect]
     Indication: AGITATION
     Dosage: UNK
     Dates: start: 19960508
  18. PEPCID [Suspect]
     Indication: DRUG USE FOR UNKNOWN INDICATION
     Dosage: UNK
     Dates: start: 19960508
  19. CLINDAMYCIN [Suspect]
     Indication: TOXOPLASMOSIS
     Dosage: UNK
     Dates: start: 19960508
  20. ACYCLOVIR [Suspect]
     Indication: ANTIVIRAL PROPHYLAXIS
     Dosage: UNK
     Dates: start: 19960508
  21. MANNITOL [Suspect]
     Indication: DRUG USE FOR UNKNOWN INDICATION
     Dosage: UNK
     Dates: start: 19960508
  22. COCAINE [Suspect]
     Indication: DRUG USE FOR UNKNOWN INDICATION
  23. 3TC [Suspect]
     Dosage: 150 MG, BID

REACTIONS (12)
  - AGITATION [None]
  - ATAXIA [None]
  - BLOOD CREATINE PHOSPHOKINASE INCREASED [None]
  - BLOOD MAGNESIUM DECREASED [None]
  - BLOOD POTASSIUM DECREASED [None]
  - DYSKINESIA [None]
  - HEADACHE [None]
  - HYPOTENSION [None]
  - MENTAL STATUS CHANGES [None]
  - MUSCULAR WEAKNESS [None]
  - TORSADE DE POINTES [None]
  - VENTRICULAR EXTRASYSTOLES [None]
